FAERS Safety Report 4309894-1 (Version None)
Quarter: 2004Q1

REPORT INFORMATION
  Report Type: 
  Country: None (occurrence: None)
  Receive Date: 20040303
  Receipt Date: 20040116
  Transmission Date: 20041129
  Serious: No
  Sender: FDA-Public Use
  Company Number: US-BRISTOL-MYERS SQUIBB COMPANY-12480455

PATIENT
  Age: 13 Year
  Sex: Male

DRUGS (2)
  1. ABILIFY [Suspect]
     Dosage: 5 MG AUG-03; INCR TO 10 MG (NO DATE); ON 10-DEC-03 INCR AGAIN TO 15 MG
     Route: 048
     Dates: start: 20030801
  2. RISPERDAL [Concomitant]

REACTIONS (4)
  - BACK PAIN [None]
  - HOT FLUSH [None]
  - NAUSEA [None]
  - NIGHT SWEATS [None]
